FAERS Safety Report 17826747 (Version 1)
Quarter: 2020Q2

REPORT INFORMATION
  Report Type: Spontaneous
  Country: US (occurrence: US)
  Receive Date: 20200526
  Receipt Date: 20200526
  Transmission Date: 20200714
  Serious: No
  Sender: FDA-Public Use
  Company Number: US-ASTRAZENECA-2020SE66486

PATIENT
  Age: 61 Year
  Sex: Female
  Weight: 74.8 kg

DRUGS (4)
  1. JANUVIA [Concomitant]
     Active Substance: SITAGLIPTIN PHOSPHATE
  2. METFORMIN [Concomitant]
     Active Substance: METFORMIN HYDROCHLORIDE
  3. BYDUREON BCISE [Suspect]
     Active Substance: EXENATIDE
     Indication: BLOOD GLUCOSE INCREASED
     Route: 065
     Dates: start: 20200406
  4. LANTUS [Concomitant]
     Active Substance: INSULIN GLARGINE
     Indication: BLOOD GLUCOSE INCREASED
     Dosage: LANTUS : SHE IS CURRENTLY TAKING 50 UNITS AND 22 UNITS AT NIGHT

REACTIONS (5)
  - Injection site pruritus [Recovered/Resolved]
  - Insurance issue [Unknown]
  - Injection site mass [Not Recovered/Not Resolved]
  - Product dose omission [Unknown]
  - Injection site erythema [Unknown]
